FAERS Safety Report 4285665-X (Version None)
Quarter: 2004Q1

REPORT INFORMATION
  Report Type: 
  Country: None (occurrence: None)
  Receive Date: 20040202
  Receipt Date: 20040123
  Transmission Date: 20041129
  Serious: Yes (Other)
  Sender: FDA-Public Use
  Company Number: OMPQ-PR-0007S-0092

PATIENT
  Sex: Female

DRUGS (1)
  1. OMNIPAQUE 140 [Suspect]
     Indication: DRUG USE FOR UNKNOWN INDICATION
     Dosage: 175 ML, SINGLE DOSE, I.A.
     Route: 013
     Dates: start: 20000706, end: 20000706

REACTIONS (4)
  - AGGRESSION [None]
  - BLINDNESS CORTICAL [None]
  - CONFUSIONAL STATE [None]
  - DISORIENTATION [None]
